FAERS Safety Report 5396288-3 (Version None)
Quarter: 2007Q3

REPORT INFORMATION
  Report Type: 
  Country: None (occurrence: None)
  Receive Date: 20070718
  Receipt Date: 20061106
  Transmission Date: 20080115
  Serious: Yes (Hospitalization, Disabling)
  Sender: FDA-Public Use
  Company Number: 2006140053

PATIENT
  Age: 54 Year
  Sex: Male
  Weight: 102.0593 kg

DRUGS (1)
  1. CELEBREX [Suspect]
     Indication: ARTHRITIS
     Dosage: 600 MG (200 MG,3 IN 1 D)
     Dates: start: 20030501, end: 20030801

REACTIONS (2)
  - CEREBROVASCULAR ACCIDENT [None]
  - TINNITUS [None]
